FAERS Safety Report 11690019 (Version 1)
Quarter: 2015Q4

REPORT INFORMATION
  Report Type: Spontaneous
  Country: US (occurrence: None)
  Receive Date: 20151030
  Receipt Date: 20151030
  Transmission Date: 20160304
  Serious: Yes (Disabling)
  Sender: FDA-Public Use
  Company Number: None

PATIENT
  Age: 33 Year
  Sex: Female
  Weight: 108.86 kg

DRUGS (1)
  1. EFFEXOR XR [Suspect]
     Active Substance: VENLAFAXINE HYDROCHLORIDE
     Indication: MAJOR DEPRESSION
     Route: 048

REACTIONS (8)
  - Dyspnoea [None]
  - Agitation [None]
  - Abnormal dreams [None]
  - Chills [None]
  - Fatigue [None]
  - Fear [None]
  - Dyskinesia [None]
  - Derealisation [None]

NARRATIVE: CASE EVENT DATE: 20130801
